FAERS Safety Report 6691798-0 (Version None)
Quarter: 2010Q2

REPORT INFORMATION
  Report Type: 
  Country: None (occurrence: None)
  Receive Date: 20100422
  Receipt Date: 20090323
  Transmission Date: 20101027
  Serious: No
  Sender: FDA-Public Use
  Company Number: US-ASTRAZENECA-2009UW07374

PATIENT
  Age: 57 Year
  Sex: Female
  Weight: 68.9 kg

DRUGS (4)
  1. TOPROL-XL [Suspect]
     Indication: TACHYCARDIA
     Route: 048
     Dates: start: 20050101
  2. DIAVAN [Concomitant]
  3. AMILORIDE HYDROCHLORIDE [Concomitant]
  4. LIBRIUM [Concomitant]

REACTIONS (4)
  - BLEPHARITIS [None]
  - PERIPHERAL COLDNESS [None]
  - PILOERECTION [None]
  - RESPIRATORY RATE DECREASED [None]
